FAERS Safety Report 7602096-2 (Version None)
Quarter: 2011Q3

REPORT INFORMATION
  Report Type: 
  Country: None (occurrence: None)
  Receive Date: 20110711
  Receipt Date: 20110707
  Transmission Date: 20111222
  Serious: Yes (Other)
  Sender: FDA-Public Use
  Company Number: CA-BAYER-2011-058905

PATIENT
  Age: 61 Year
  Sex: Female

DRUGS (1)
  1. MAGNEVIST [Suspect]
     Indication: PRODUCT USED FOR UNKNOWN INDICATION
     Dosage: 10 ML, ONCE
     Route: 042

REACTIONS (2)
  - REMOVAL OF FOREIGN BODY FROM THROAT [None]
  - COUGH [None]
